FAERS Safety Report 5845591-9 (Version None)
Quarter: 2008Q3

REPORT INFORMATION
  Report Type: 
  Country: None (occurrence: None)
  Receive Date: 20080814
  Receipt Date: 20080804
  Transmission Date: 20090109
  Serious: Yes (Death, Other)
  Sender: FDA-Public Use
  Company Number: US-TYCO HEALTHCARE/MALLINCKRODT-T200801247

PATIENT

DRUGS (4)
  1. METHADOSE [Suspect]
     Indication: DRUG ABUSE
     Dosage: PILLS WERE CRUSHED AND SNORTED
     Route: 045
     Dates: end: 20080627
  2. OXYCODONE HCL [Suspect]
     Indication: DRUG ABUSE
     Dosage: PILLS WERE CRUSHED AND SNORTED
     Route: 045
     Dates: end: 20080627
  3. XANAX [Suspect]
     Indication: DRUG ABUSE
     Dosage: PILLS WERE CRUSHED AND SNORTED
     Route: 045
     Dates: end: 20080627
  4. HYDROCODONE BITARTRATE [Suspect]
     Indication: DRUG ABUSE
     Dosage: PILLS WERE CRUSHED AND SNORTED
     Route: 045
     Dates: end: 20080627

REACTIONS (4)
  - ACCIDENTAL OVERDOSE [None]
  - DRUG DIVERSION [None]
  - INTENTIONAL DRUG MISUSE [None]
  - WRONG TECHNIQUE IN DRUG USAGE PROCESS [None]
